FAERS Safety Report 17152998 (Version 1)
Quarter: 2019Q4

REPORT INFORMATION
  Report Type: Spontaneous
  Country: US (occurrence: US)
  Receive Date: 20191213
  Receipt Date: 20191213
  Transmission Date: 20200122
  Serious: Yes (Hospitalization)
  Sender: FDA-Public Use
  Company Number: US-BAUSCH-BL-2019-064480

PATIENT
  Age: 24 Year
  Sex: Male
  Weight: 59.93 kg

DRUGS (8)
  1. RIFAXIMIN. [Suspect]
     Active Substance: RIFAXIMIN
     Indication: OFF LABEL USE
  2. NASOCORT [Concomitant]
     Active Substance: BUDESONIDE
     Indication: PRODUCT USED FOR UNKNOWN INDICATION
  3. XIFAXAN [Suspect]
     Active Substance: RIFAXIMIN
     Indication: GASTROINTESTINAL BACTERIAL OVERGROWTH
     Dosage: THERAPY START DATE: APPROXIMATELY 2 TO 3 YEARS AGO
     Route: 048
  4. XIFAXAN [Suspect]
     Active Substance: RIFAXIMIN
     Indication: OFF LABEL USE
  5. SYMBICORT [Concomitant]
     Active Substance: BUDESONIDE\FORMOTEROL FUMARATE DIHYDRATE
     Indication: PRODUCT USED FOR UNKNOWN INDICATION
  6. CLARITIN [Concomitant]
     Active Substance: LORATADINE
     Indication: PRODUCT USED FOR UNKNOWN INDICATION
  7. MONTELUKAST [Concomitant]
     Active Substance: MONTELUKAST SODIUM
     Indication: PRODUCT USED FOR UNKNOWN INDICATION
  8. RIFAXIMIN. [Suspect]
     Active Substance: RIFAXIMIN
     Indication: GASTROINTESTINAL BACTERIAL OVERGROWTH
     Route: 048

REACTIONS (7)
  - Product quality issue [Unknown]
  - Off label use [Unknown]
  - Insurance issue [Unknown]
  - Therapeutic product effect decreased [Unknown]
  - Drug effective for unapproved indication [Unknown]
  - Inability to afford medication [Unknown]
  - Intestinal pseudo-obstruction [Unknown]

NARRATIVE: CASE EVENT DATE: 2019
